FAERS Safety Report 13521479 (Version 1)
Quarter: 2017Q2

REPORT INFORMATION
  Report Type: Spontaneous
  Country: US (occurrence: US)
  Receive Date: 20170508
  Receipt Date: 20170508
  Transmission Date: 20170830
  Serious: No
  Sender: FDA-Public Use
  Company Number: US-BAYER-2017-082902

PATIENT
  Age: 74 Year
  Sex: Female
  Weight: 55 kg

DRUGS (2)
  1. MIRALAX [Suspect]
     Active Substance: POLYETHYLENE GLYCOL 3350
     Indication: GASTROINTESTINAL DISORDER
     Dosage: 1/4 TEASPOON OR LESS, QD
     Route: 048
  2. PANKREON [PANCREATIN] [Concomitant]
     Dosage: 1 DF, MT

REACTIONS (2)
  - Product taste abnormal [Unknown]
  - Product use issue [Unknown]
